FAERS Safety Report 5492875-2 (Version None)
Quarter: 2007Q4

REPORT INFORMATION
  Report Type: 
  Country: None (occurrence: None)
  Receive Date: 20071019
  Receipt Date: 20071007
  Transmission Date: 20080405
  Serious: Yes (Death, Life-Threatening, Other)
  Sender: FDA-Public Use
  Company Number: 2007JP003874

PATIENT
  Sex: Male

DRUGS (12)
  1. TACROLIMUS [Suspect]
     Indication: RHEUMATOID ARTHRITIS
     Dosage: 1 MG, UID/QD, ORAL; 1.5 MG, UID/QD, ORAL; 2 MG, UID/QD, ORAL
     Route: 048
     Dates: start: 20060819, end: 20060915
  2. TACROLIMUS [Suspect]
     Indication: RHEUMATOID ARTHRITIS
     Dosage: 1 MG, UID/QD, ORAL; 1.5 MG, UID/QD, ORAL; 2 MG, UID/QD, ORAL
     Route: 048
     Dates: start: 20060916, end: 20061116
  3. TACROLIMUS [Suspect]
     Indication: RHEUMATOID ARTHRITIS
     Dosage: 1 MG, UID/QD, ORAL; 1.5 MG, UID/QD, ORAL; 2 MG, UID/QD, ORAL
     Route: 048
     Dates: start: 20061117, end: 20061208
  4. PREDNISOLONE [Concomitant]
  5. RELIFEN [Concomitant]
  6. RISEDRONATE SODIUM [Concomitant]
  7. LIVALO (ITAVASTATIN CALCIUM) [Concomitant]
  8. AMLODIPINE BESYLATE [Concomitant]
  9. MARZULENE S (LEVOGLUTAMIDE, SODIUM GUALENATE) [Concomitant]
  10. GLYBURIDE [Concomitant]
  11. GLYCORAN (METFORMIN HYDROCHLORIDE) [Concomitant]
  12. BASEN (VOGLIBOSE) [Concomitant]

REACTIONS (12)
  - ABASIA [None]
  - BLADDER DISORDER [None]
  - CONDITION AGGRAVATED [None]
  - GASTROINTESTINAL DISORDER [None]
  - LUNG NEOPLASM MALIGNANT [None]
  - METASTASES TO BONE [None]
  - PNEUMONIA [None]
  - RESTLESSNESS [None]
  - SPINAL COMPRESSION FRACTURE [None]
  - SPINAL CORD INJURY [None]
  - VENTRICULAR TACHYCARDIA [None]
  - WHITE BLOOD CELL COUNT INCREASED [None]
